FAERS Safety Report 14304602 (Version 1)
Quarter: 2017Q4

REPORT INFORMATION
  Report Type: Spontaneous
  Country: US (occurrence: US)
  Receive Date: 20171219
  Receipt Date: 20171219
  Transmission Date: 20180321
  Serious: Yes (Other)
  Sender: FDA-Public Use
  Company Number: US-OTSUKA-DJ201301884

PATIENT

DRUGS (3)
  1. WAFARIN [Concomitant]
     Active Substance: WARFARIN
     Indication: HYPERCOAGULATION
  2. ABILIFY [Suspect]
     Active Substance: ARIPIPRAZOLE
     Indication: ANXIETY
     Route: 048
  3. COUMADIN [Concomitant]
     Active Substance: WARFARIN SODIUM
     Route: 065

REACTIONS (3)
  - Syncope [Unknown]
  - Vision blurred [Unknown]
  - Rectal discharge [Unknown]
